FAERS Safety Report 15580100 (Version 1)
Quarter: 2018Q4

REPORT INFORMATION
  Report Type: Other
  Country: FR (occurrence: FR)
  Receive Date: 20181102
  Receipt Date: 20181102
  Transmission Date: 20190205
  Serious: Yes (Other)
  Sender: FDA-Public Use
  Company Number: FR-ACTELION-A-CH2018-181009

PATIENT

DRUGS (1)
  1. ZAVESCA [Suspect]
     Active Substance: MIGLUSTAT
     Indication: NIEMANN-PICK DISEASE
     Route: 048

REACTIONS (10)
  - Tremor [Unknown]
  - Depression [Unknown]
  - Transaminases increased [Recovered/Resolved]
  - Diarrhoea [Unknown]
  - Neurological decompensation [Not Recovered/Not Resolved]
  - Alanine aminotransferase increased [Recovered/Resolved]
  - Psychotic disorder [Recovered/Resolved]
  - Aspartate aminotransferase increased [Recovered/Resolved]
  - Weight decreased [Unknown]
  - Drug ineffective [Unknown]
